FAERS Safety Report 14353307 (Version 1)
Quarter: 2018Q1

REPORT INFORMATION
  Report Type: Report from Study
  Country: NL (occurrence: NL)
  Receive Date: 20180105
  Receipt Date: 20180105
  Transmission Date: 20180509
  Serious: Yes (Hospitalization, Other)
  Sender: FDA-Public Use
  Company Number: NL-AMGEN-NLDSL2017191473

PATIENT
  Age: 56 Year
  Sex: Female

DRUGS (3)
  1. XGEVA [Suspect]
     Active Substance: DENOSUMAB
     Indication: BREAST CANCER METASTATIC
     Dosage: UNK UNK, Q3WK
     Route: 065
  2. MORPHINE [Concomitant]
     Active Substance: MORPHINE
     Dosage: 120 MG, QD
  3. FEC [Concomitant]
     Active Substance: CYCLOPHOSPHAMIDE\EPIRUBICIN HYDROCHLORIDE\FLUOROURACIL
     Indication: BREAST CANCER
     Dosage: UNK
     Dates: start: 20171128

REACTIONS (9)
  - Muscle rigidity [Unknown]
  - Chronic obstructive pulmonary disease [Unknown]
  - Hypovolaemia [Unknown]
  - Pancytopenia [Unknown]
  - Tremor [Unknown]
  - Hyperkalaemia [Unknown]
  - Malaise [Unknown]
  - Pneumococcal sepsis [Unknown]
  - Acute kidney injury [Unknown]
